FAERS Safety Report 10340345 (Version 1)
Quarter: 2014Q3

REPORT INFORMATION
  Report Type: Spontaneous
  Country: US (occurrence: US)
  Receive Date: 20140724
  Receipt Date: 20140724
  Transmission Date: 20150326
  Serious: No
  Sender: FDA-Public Use
  Company Number: US-009507513-1407USA010676

PATIENT
  Age: 13 Year
  Sex: Male

DRUGS (1)
  1. DR. SCHOLLS CORN/CALLUS REMOVER [Suspect]
     Active Substance: SALICYLIC ACID
     Indication: HYPERKERATOSIS
     Dosage: UNK UNK, UNKNOWN
     Route: 061
     Dates: start: 201404

REACTIONS (4)
  - Skin exfoliation [Not Recovered/Not Resolved]
  - Product quality issue [Unknown]
  - Drug administration error [Unknown]
  - Burning sensation [Unknown]

NARRATIVE: CASE EVENT DATE: 201404
